FAERS Safety Report 5734517-4 (Version None)
Quarter: 2008Q2

REPORT INFORMATION
  Report Type: 
  Country: None (occurrence: None)
  Receive Date: 20080512
  Receipt Date: 20080506
  Transmission Date: 20081010
  Serious: Yes (Death)
  Sender: FDA-Public Use
  Company Number: PHEH2008US04349

PATIENT
  Age: 49 Year
  Sex: Male

DRUGS (1)
  1. ZELNORM [Suspect]

REACTIONS (5)
  - ANHEDONIA [None]
  - ANXIETY [None]
  - DEATH [None]
  - INJURY [None]
  - PAIN [None]
